FAERS Safety Report 15065839 (Version 1)
Quarter: 2018Q2

REPORT INFORMATION
  Report Type: Spontaneous
  Country: US (occurrence: US)
  Receive Date: 20180605
  Receipt Date: 20180605
  Transmission Date: 20180711
  Serious: No
  Sender: FDA-Public Use
  Company Number: None

PATIENT
  Age: 46 Year

DRUGS (1)
  1. CIMZIA [Suspect]
     Active Substance: CERTOLIZUMAB PEGOL
     Indication: COLITIS
     Route: 058
     Dates: start: 20160923

REACTIONS (2)
  - Drug dose omission [None]
  - Colitis [None]

NARRATIVE: CASE EVENT DATE: 20180505
